FAERS Safety Report 19478041 (Version 3)
Quarter: 2021Q3

REPORT INFORMATION
  Report Type: Spontaneous
  Country: JP (occurrence: JP)
  Receive Date: 20210630
  Receipt Date: 20210922
  Transmission Date: 20211014
  Serious: Yes (Hospitalization)
  Sender: FDA-Public Use
  Company Number: JP-PFIZER INC-2021740451

PATIENT
  Age: 83 Year
  Sex: Male
  Weight: 47 kg

DRUGS (5)
  1. OXALIPLATIN. [Suspect]
     Active Substance: OXALIPLATIN
     Indication: RECTAL CANCER
     Dosage: 126 MG, DAILY
     Route: 041
     Dates: start: 20210518, end: 20210518
  2. CAPECITABINE. [Suspect]
     Active Substance: CAPECITABINE
     Indication: RECTAL CANCER
     Dosage: 2400 MG (300 MG X 8 TABLETS), DAILY
     Route: 048
     Dates: start: 20210518, end: 20210527
  3. BEVACIZUMAB PFIZER [Suspect]
     Active Substance: BEVACIZUMAB
     Indication: RECTAL CANCER
     Dosage: 338 MG, DAILY
     Route: 041
     Dates: start: 20210608, end: 20210608
  4. OXALIPLATIN. [Suspect]
     Active Substance: OXALIPLATIN
     Dosage: 146 MG, DAILY
     Route: 041
     Dates: start: 20210608, end: 20210608
  5. CAPECITABINE. [Suspect]
     Active Substance: CAPECITABINE
     Dosage: 2400 MG (300 MG X 8 TABLETS), DAILY
     Route: 048
     Dates: start: 20210608, end: 20210616

REACTIONS (1)
  - Interstitial lung disease [Recovering/Resolving]

NARRATIVE: CASE EVENT DATE: 20210618
